FAERS Safety Report 19708624 (Version 2)
Quarter: 2021Q3

REPORT INFORMATION
  Report Type: Spontaneous
  Country: US (occurrence: US)
  Receive Date: 20210817
  Receipt Date: 20210907
  Transmission Date: 20211014
  Serious: No
  Sender: FDA-Public Use
  Company Number: US-ALKERMES INC.-ALK-2021-004252

PATIENT
  Sex: Female

DRUGS (1)
  1. VIVITROL [Suspect]
     Active Substance: NALTREXONE
     Indication: ALCOHOLISM
     Dosage: 380 MILLIGRAM, Q28D
     Route: 030
     Dates: start: 202107, end: 202107

REACTIONS (7)
  - Sneezing [Unknown]
  - Malaise [Unknown]
  - Impaired work ability [Unknown]
  - Feeling abnormal [Unknown]
  - Muscle spasms [Unknown]
  - Vomiting [Recovered/Resolved]
  - Nausea [Recovered/Resolved]

NARRATIVE: CASE EVENT DATE: 2021
